FAERS Safety Report 7101075-1 (Version None)
Quarter: 2010Q4

REPORT INFORMATION
  Report Type: 
  Country: None (occurrence: None)
  Receive Date: 20101113
  Receipt Date: 20100426
  Transmission Date: 20110411
  Serious: No
  Sender: FDA-Public Use
  Company Number: US-ALLERGAN-1005445US

PATIENT
  Age: 70 Year
  Sex: Female

DRUGS (5)
  1. BOTOXA? [Suspect]
     Indication: FACIAL SPASM
     Dosage: UNK
     Dates: start: 20100311, end: 20100311
  2. FOSAMAX [Concomitant]
     Indication: OSTEOPOROSIS
  3. INDERAL [Concomitant]
     Indication: HYPERTENSION
  4. HYDRALAZINE [Concomitant]
     Indication: HYPERTENSION
  5. ASPIRIN [Concomitant]
     Indication: HYPERTENSION

REACTIONS (5)
  - DRUG INEFFECTIVE [None]
  - ERYTHEMA [None]
  - EYE SWELLING [None]
  - SWELLING FACE [None]
  - THERAPEUTIC RESPONSE DECREASED [None]
